FAERS Safety Report 7672078-3 (Version None)
Quarter: 2011Q3

REPORT INFORMATION
  Report Type: 
  Country: None (occurrence: None)
  Receive Date: 20110809
  Receipt Date: 20110729
  Transmission Date: 20111222
  Serious: Yes (Hospitalization)
  Sender: FDA-Public Use
  Company Number: PHHO2011US00997

PATIENT
  Sex: Female
  Weight: 38 kg

DRUGS (10)
  1. NAMENDA [Concomitant]
     Indication: DEMENTIA ALZHEIMER'S TYPE
     Dosage: 20 MG, QD
     Dates: start: 20100208, end: 20110111
  2. RAMIPRIL [Concomitant]
     Indication: HYPERTENSION
     Dosage: 10 MG, QD
     Dates: start: 20080901, end: 20110111
  3. VYTORIN [Concomitant]
     Indication: HYPERLIPIDAEMIA
     Dosage: UNK
     Dates: start: 20080901, end: 20110111
  4. ASPIRIN [Concomitant]
     Indication: PROPHYLAXIS
     Dosage: 81 MG, QD
     Dates: start: 20080301, end: 20110111
  5. CARVEDILOL [Concomitant]
     Indication: HYPERTENSION
     Dosage: 12.5 MG, BID
     Dates: start: 20100615, end: 20110111
  6. DECITABINE [Concomitant]
  7. EXELON [Suspect]
     Dosage: 15 CM2 PATCH
     Route: 062
     Dates: start: 20110104, end: 20110110
  8. NEXIUM [Concomitant]
  9. COREG [Concomitant]
     Indication: HYPERTENSION
     Dosage: 10 MG, QD
     Dates: start: 20080101, end: 20110111
  10. EXELON [Suspect]
     Indication: DEMENTIA ALZHEIMER'S TYPE
     Dosage: 15 CM2 PATCH
     Route: 062
     Dates: start: 20101201, end: 20110103

REACTIONS (6)
  - HYPOPHAGIA [None]
  - DEHYDRATION [None]
  - MENTAL STATUS CHANGES [None]
  - SOMNOLENCE [None]
  - AGITATION [None]
  - ASTHENIA [None]
